FAERS Safety Report 25539051 (Version 1)
Quarter: 2025Q3

REPORT INFORMATION
  Report Type: Spontaneous
  Country: BR (occurrence: BR)
  Receive Date: 20250710
  Receipt Date: 20250710
  Transmission Date: 20251021
  Serious: Yes (Other)
  Sender: NOVARTIS
  Company Number: BR-002147023-NVSC2025BR107449

PATIENT

DRUGS (2)
  1. IMATINIB [Suspect]
     Active Substance: IMATINIB
     Indication: Product used for unknown indication
     Dosage: 300 MG, QD
     Route: 065
  2. NILOTINIB [Suspect]
     Active Substance: NILOTINIB
     Indication: Product used for unknown indication
     Route: 065

REACTIONS (2)
  - Drug eruption [Unknown]
  - Rash [Not Recovered/Not Resolved]
